FAERS Safety Report 23830112 (Version 1)
Quarter: 2024Q2

REPORT INFORMATION
  Report Type: Spontaneous
  Country: SG (occurrence: SG)
  Receive Date: 20240508
  Receipt Date: 20240508
  Transmission Date: 20240716
  Serious: Yes (Hospitalization, Other)
  Sender: FDA-Public Use
  Company Number: SG-NOVAST LABORATORIES INC.-2024NOV000233

PATIENT
  Age: 55 Year
  Sex: Female

DRUGS (4)
  1. METFORMIN [Suspect]
     Active Substance: METFORMIN HYDROCHLORIDE
     Indication: Type 2 diabetes mellitus
     Dosage: 1000 MILLIGRAM, BID
     Route: 065
  2. VALPROATE SODIUM [Concomitant]
     Active Substance: VALPROATE SODIUM
     Indication: Product used for unknown indication
     Dosage: 500 MILLIGRAM, PER DAY
     Route: 065
  3. LITHIUM [Concomitant]
     Active Substance: LITHIUM
     Indication: Product used for unknown indication
     Dosage: 600 MILLIGRAM, PER DAY
     Route: 065
  4. CARIPRAZINE [Concomitant]
     Active Substance: CARIPRAZINE
     Indication: Product used for unknown indication
     Dosage: 4.5 MILLIGRAM, PER DAY
     Route: 065

REACTIONS (1)
  - Bipolar I disorder [Recovered/Resolved]
